FAERS Safety Report 25365800 (Version 3)
Quarter: 2025Q3

REPORT INFORMATION
  Report Type: Spontaneous
  Country: US (occurrence: US)
  Receive Date: 20250528
  Receipt Date: 20250705
  Transmission Date: 20251020
  Serious: No
  Sender: SANOFI AVENTIS
  Company Number: US-SA-2025SA149128

PATIENT
  Age: 40 Year
  Sex: Female
  Weight: 77.098 kg

DRUGS (21)
  1. DUPIXENT [Suspect]
     Active Substance: DUPILUMAB
     Indication: Migraine without aura
     Dosage: 300 MG, QW
     Route: 058
  2. ZOLPIDEM TARTRATE [Concomitant]
     Active Substance: ZOLPIDEM TARTRATE
  3. METRONIDAZOLE [Concomitant]
     Active Substance: METRONIDAZOLE
  4. AJOVY [Concomitant]
     Active Substance: FREMANEZUMAB-VFRM
  5. DICYCLOMINE [Concomitant]
     Active Substance: DICYCLOMINE HYDROCHLORIDE
  6. SOOLANTRA [Concomitant]
     Active Substance: IVERMECTIN
  7. MONTELUKAST SODIUM [Concomitant]
     Active Substance: MONTELUKAST SODIUM
  8. TIZANIDINE [Concomitant]
     Active Substance: TIZANIDINE
  9. FAMOTIDINE [Concomitant]
     Active Substance: FAMOTIDINE
  10. TRULANCE [Concomitant]
     Active Substance: PLECANATIDE
  11. ELETRIPTAN [Concomitant]
     Active Substance: ELETRIPTAN
  12. BUTALBITAL AND ACETAMINOPHEN [Concomitant]
     Active Substance: ACETAMINOPHEN\BUTALBITAL
  13. DULOXETINE [Concomitant]
     Active Substance: DULOXETINE
  14. METHYLPREDNISOLONE [Concomitant]
     Active Substance: METHYLPREDNISOLONE
  15. LISINOPRIL [Concomitant]
     Active Substance: LISINOPRIL
  16. NURTEC ODT [Concomitant]
     Active Substance: RIMEGEPANT SULFATE
  17. SODIUM SULFACETAMIDE [Concomitant]
     Active Substance: SULFACETAMIDE SODIUM
  18. PREDNISONE [Concomitant]
     Active Substance: PREDNISONE
  19. ONDANSETRON [Concomitant]
     Active Substance: ONDANSETRON
  20. LINZESS [Concomitant]
     Active Substance: LINACLOTIDE
  21. ESOMEPRAZOLE MAGNESIUM [Concomitant]
     Active Substance: ESOMEPRAZOLE MAGNESIUM

REACTIONS (2)
  - Headache [Unknown]
  - Product use in unapproved indication [Unknown]
